FAERS Safety Report 4842524-9 (Version None)
Quarter: 2005Q4

REPORT INFORMATION
  Report Type: 
  Country: None (occurrence: None)
  Receive Date: 20051201
  Receipt Date: 20051121
  Transmission Date: 20060501
  Serious: Yes (Hospitalization)
  Sender: FDA-Public Use
  Company Number: DE-JNJFOC-20050705941

PATIENT
  Age: 70 Year
  Sex: Male
  Weight: 81.3 kg

DRUGS (9)
  1. INFLIXIMAB [Suspect]
     Route: 042
  2. PREDNISOLONE [Concomitant]
     Indication: RHEUMATOID ARTHRITIS
     Route: 048
  3. AZATHIOPRINE [Concomitant]
     Indication: RHEUMATOID ARTHRITIS
     Route: 048
  4. CALCIUM GLUCONATE [Concomitant]
     Indication: OSTEOPOROSIS
     Route: 048
  5. VITAMIN D3 [Concomitant]
     Indication: OSTEOPOROSIS
     Route: 048
  6. NEBIVOLOL HCL [Concomitant]
     Route: 048
  7. NITRENDIPIN [Concomitant]
     Route: 048
  8. TILIDIN [Concomitant]
     Indication: PAIN
     Route: 048
  9. NALOXON [Concomitant]
     Indication: PAIN
     Route: 048

REACTIONS (1)
  - SMALL CELL LUNG CANCER STAGE UNSPECIFIED [None]
